FAERS Safety Report 17434864 (Version 1)
Quarter: 2020Q1

REPORT INFORMATION
  Report Type: Spontaneous
  Country: US (occurrence: US)
  Receive Date: 20200219
  Receipt Date: 20200219
  Transmission Date: 20200409
  Serious: Yes (Hospitalization, Other)
  Sender: FDA-Public Use
  Company Number: NVSC2020US043353

PATIENT
  Age: 34 Year
  Sex: Female

DRUGS (1)
  1. OMEPRAZOLE. [Suspect]
     Active Substance: OMEPRAZOLE
     Indication: PRODUCT USED FOR UNKNOWN INDICATION
     Dosage: 40 MG, BID
     Route: 065

REACTIONS (10)
  - Blister [Recovering/Resolving]
  - Pustule [Recovering/Resolving]
  - Telangiectasia [Recovering/Resolving]
  - Subacute cutaneous lupus erythematosus [Recovering/Resolving]
  - Oral disorder [Recovering/Resolving]
  - Pruritus [Recovering/Resolving]
  - Haematoma [Recovering/Resolving]
  - Skin lesion [Recovering/Resolving]
  - Oral candidiasis [Recovering/Resolving]
  - Mouth ulceration [Recovering/Resolving]
